FAERS Safety Report 23949052 (Version 1)
Quarter: 2024Q2

REPORT INFORMATION
  Report Type: Spontaneous
  Country: PT (occurrence: PT)
  Receive Date: 20240607
  Receipt Date: 20240607
  Transmission Date: 20240716
  Serious: Yes (Other)
  Sender: FDA-Public Use
  Company Number: PT-UCBSA-2024024508

PATIENT
  Age: 32 Year
  Sex: Female

DRUGS (1)
  1. LEVETIRACETAM [Suspect]
     Active Substance: LEVETIRACETAM
     Indication: Seizure
     Dosage: 1 GRAM
     Route: 065

REACTIONS (3)
  - Generalised tonic-clonic seizure [Unknown]
  - Hemianopia homonymous [Unknown]
  - Drug ineffective [Unknown]
